FAERS Safety Report 10694006 (Version 2)
Quarter: 2015Q1

REPORT INFORMATION
  Report Type: Spontaneous
  Country: DE (occurrence: DE)
  Receive Date: 20150106
  Receipt Date: 20150122
  Transmission Date: 20150721
  Serious: Yes (Other)
  Sender: FDA-Public Use
  Company Number: DE-BAXTER-2014BAX077150

PATIENT
  Sex: Female

DRUGS (3)
  1. SYMBICORT [Concomitant]
     Active Substance: BUDESONIDE\FORMOTEROL FUMARATE DIHYDRATE
     Indication: ASTHMA
     Route: 055
  2. RINGER BAXTER INFUSIONSL?SUNG [Suspect]
     Active Substance: RINGER^S SOLUTION
     Indication: OFF LABEL USE
  3. RINGER BAXTER INFUSIONSL?SUNG [Suspect]
     Active Substance: RINGER^S SOLUTION
     Indication: IRRIGATION THERAPY
     Route: 065
     Dates: start: 20141202

REACTIONS (3)
  - Acute pulmonary oedema [Unknown]
  - Fluid overload [Unknown]
  - Drug interaction [Unknown]

NARRATIVE: CASE EVENT DATE: 20141202
